FAERS Safety Report 7591751-9 (Version None)
Quarter: 2011Q3

REPORT INFORMATION
  Report Type: 
  Country: None (occurrence: None)
  Receive Date: 20110706
  Receipt Date: 20110621
  Transmission Date: 20111222
  Serious: Yes (Other)
  Sender: FDA-Public Use
  Company Number: PL-RANBAXY-2011RR-42947

PATIENT
  Sex: Female
  Weight: 74.5 kg

DRUGS (1)
  1. CLARITHROMYCIN [Suspect]
     Dosage: UNK MG, UNK
     Route: 048

REACTIONS (2)
  - INVESTIGATION [None]
  - NO ADVERSE EVENT [None]
